FAERS Safety Report 18375255 (Version 1)
Quarter: 2020Q4

REPORT INFORMATION
  Report Type: Report from Study
  Country: FR (occurrence: FR)
  Receive Date: 20201012
  Receipt Date: 20201012
  Transmission Date: 20210114
  Serious: Yes (Other)
  Sender: FDA-Public Use
  Company Number: FR-AUROBINDO-AUR-APL-2020-051378

PATIENT

DRUGS (4)
  1. CISPLATIN. [Suspect]
     Active Substance: CISPLATIN
     Indication: ADENOCARCINOMA PANCREAS
     Dosage: 30 MILLIGRAM/SQ. METER
     Route: 065
  2. CAPECITABINE. [Suspect]
     Active Substance: CAPECITABINE
     Indication: ADENOCARCINOMA PANCREAS
     Dosage: 1250 MILLIGRAM/SQ. METER, ONCE A DAY (ON DAYS 1 TO 28 REGULARLY)
     Route: 065
  3. GEMCITABINE. [Suspect]
     Active Substance: GEMCITABINE
     Indication: ADENOCARCINOMA PANCREAS
     Dosage: 800 MILLIGRAM/SQ. METER
     Route: 065
  4. DOCETAXEL SOLUTION FOR INFUSION [Suspect]
     Active Substance: DOCETAXEL
     Indication: ADENOCARCINOMA PANCREAS
     Dosage: 25 MILLIGRAM/SQ. METER (ON DAYS 1 AND 15)
     Route: 065

REACTIONS (1)
  - Febrile neutropenia [Unknown]
